FAERS Safety Report 15635087 (Version 2)
Quarter: 2018Q4

REPORT INFORMATION
  Report Type: Spontaneous
  Country: US (occurrence: US)
  Receive Date: 20181119
  Receipt Date: 20181120
  Transmission Date: 20190205
  Serious: Yes (Other)
  Sender: FDA-Public Use
  Company Number: US-CELGENEUS-USA-20181104348

PATIENT
  Sex: Male
  Weight: 93.07 kg

DRUGS (2)
  1. REVLIMID [Suspect]
     Active Substance: LENALIDOMIDE
     Indication: PLASMA CELL MYELOMA
     Dosage: 25 MILLIGRAM
     Route: 048
     Dates: start: 201810
  2. REVLIMID [Suspect]
     Active Substance: LENALIDOMIDE
     Dosage: 10 MILLIGRAM
     Route: 048
     Dates: start: 201811

REACTIONS (15)
  - Pruritus [Unknown]
  - Bone pain [Unknown]
  - Abdominal pain [Unknown]
  - Constipation [Unknown]
  - Muscle spasms [Unknown]
  - Pain in extremity [Unknown]
  - Ear discomfort [Unknown]
  - Diarrhoea [Unknown]
  - Rash [Unknown]
  - Burning sensation [Unknown]
  - Ear pain [Unknown]
  - Neuropathy peripheral [Unknown]
  - Decreased appetite [Unknown]
  - Hypoacusis [Unknown]
  - Dry mouth [Unknown]

NARRATIVE: CASE EVENT DATE: 2018
